FAERS Safety Report 19573178 (Version 1)
Quarter: 2021Q3

REPORT INFORMATION
  Report Type: Report from Study
  Country: US (occurrence: US)
  Receive Date: 20210716
  Receipt Date: 20210716
  Transmission Date: 20211014
  Serious: Yes (Hospitalization)
  Sender: FDA-Public Use
  Company Number: US-BAXTER-2021BAX020530

PATIENT
  Sex: Male
  Weight: 113.6 kg

DRUGS (16)
  1. ONCASPAR [Suspect]
     Active Substance: PEGASPARGASE
     Indication: PRODUCT USED FOR UNKNOWN INDICATION
     Dosage: 1 TO 3RD COURSE
     Route: 065
     Dates: start: 20201027
  2. THIOGUANINE [Suspect]
     Active Substance: THIOGUANINE
     Dosage: COURSE 4: TOTAL DOSE ADMINISTERED THIS COURSE (DOSE): 1040 MG
     Route: 065
     Dates: start: 20210525, end: 20210601
  3. DOXIL [Suspect]
     Active Substance: DOXORUBICIN HYDROCHLORIDE
     Indication: PRODUCT USED FOR UNKNOWN INDICATION
     Dosage: 1 TO 3RD COURSE
     Route: 065
     Dates: start: 20201027
  4. DOXIL [Suspect]
     Active Substance: DOXORUBICIN HYDROCHLORIDE
     Dosage: COURSE 4: TOTAL DOSE ADMINISTERED THIS COURSE (DOSE): 164.28 MG
     Route: 065
     Dates: start: 20210407, end: 20210421
  5. RITUXIMAB. [Suspect]
     Active Substance: RITUXIMAB
     Dosage: COURSE 4: TOTAL DOSE ADMINISTERED THIS COURSE (DOSE): 1642.6 MG
     Route: 065
     Dates: start: 20210407, end: 20210414
  6. METHOTREXATE SODIUM. [Suspect]
     Active Substance: METHOTREXATE SODIUM
     Dosage: COURSE 4: TOTAL DOSE ADMINISTERED THIS COURSE (DOSE): 45 MG
     Route: 065
     Dates: start: 20210407, end: 20210601
  7. RITUXIMAB. [Suspect]
     Active Substance: RITUXIMAB
     Indication: PRODUCT USED FOR UNKNOWN INDICATION
     Dosage: 1 TO 3RD COURSE
     Route: 065
     Dates: start: 20201027
  8. VINCRISTINE SULFATE. [Suspect]
     Active Substance: VINCRISTINE SULFATE
     Dosage: COURSE 4: TOTAL DOSE ADMINISTERED THIS COURSE (DOSE): 8 MG
     Route: 065
     Dates: start: 20210407, end: 20210608
  9. ONCASPAR [Suspect]
     Active Substance: PEGASPARGASE
     Dosage: COURSE 4: TOTAL DOSE ADMINISTERED THIS COURSE (DOSE): 7500 IU
     Route: 065
     Dates: start: 20210412, end: 20210608
  10. THIOGUANINE [Suspect]
     Active Substance: THIOGUANINE
     Indication: PRODUCT USED FOR UNKNOWN INDICATION
     Dosage: 1 TO 3RD COURSE
     Route: 065
     Dates: start: 20201027
  11. CYCLOPHOSPHAMIDE FOR INJECTION, USP [Suspect]
     Active Substance: CYCLOPHOSPHAMIDE
     Indication: PRODUCT USED FOR UNKNOWN INDICATION
     Dosage: 1 TO 3RD COURSE
     Route: 065
     Dates: start: 20201027
  12. CYCLOPHOSPHAMIDE FOR INJECTION, USP [Suspect]
     Active Substance: CYCLOPHOSPHAMIDE
     Dosage: COURSE 4: TOTAL DOSE ADMINISTERED THIS COURSE (DOSE): 2200 MG
     Route: 065
     Dates: start: 20210525, end: 20210525
  13. CYTARABINE. [Suspect]
     Active Substance: CYTARABINE
     Indication: PRODUCT USED FOR UNKNOWN INDICATION
     Dosage: 1 TO 3RD COURSE
     Route: 065
     Dates: start: 20201027
  14. CYTARABINE. [Suspect]
     Active Substance: CYTARABINE
     Dosage: COURSE 4: TOTAL DOSE ADMINISTERED THIS COURSE (DOSE): 1314.4 MG
     Route: 065
     Dates: start: 20210525, end: 20210604
  15. VINCRISTINE SULFATE. [Suspect]
     Active Substance: VINCRISTINE SULFATE
     Indication: PRODUCT USED FOR UNKNOWN INDICATION
     Dosage: 1 TO 3RD COURSE
     Route: 065
     Dates: start: 20201027
  16. METHOTREXATE SODIUM. [Suspect]
     Active Substance: METHOTREXATE SODIUM
     Indication: PRODUCT USED FOR UNKNOWN INDICATION
     Dosage: 1 TO 3RD COURSE
     Route: 065
     Dates: start: 20201027

REACTIONS (1)
  - Febrile neutropenia [Recovered/Resolved]

NARRATIVE: CASE EVENT DATE: 20210609
